FAERS Safety Report 23844321 (Version 1)
Quarter: 2024Q2

REPORT INFORMATION
  Report Type: Spontaneous
  Country: CN (occurrence: CN)
  Receive Date: 20240510
  Receipt Date: 20240510
  Transmission Date: 20240716
  Serious: Yes (Other)
  Sender: FDA-Public Use
  Company Number: CN-ELI_LILLY_AND_COMPANY-CN202405002202

PATIENT
  Age: 39 Year
  Sex: Female
  Weight: 60 kg

DRUGS (2)
  1. DULOXETINE HYDROCHLORIDE [Suspect]
     Active Substance: DULOXETINE HYDROCHLORIDE
     Indication: Antidepressant therapy
     Dosage: 60 MG, BID
     Route: 048
     Dates: start: 20240329, end: 20240423
  2. MIANSERIN HYDROCHLORIDE [Suspect]
     Active Substance: MIANSERIN HYDROCHLORIDE
     Indication: Antidepressant therapy
     Dosage: 45 MG, DAILY
     Route: 048
     Dates: start: 20240417, end: 20240422

REACTIONS (5)
  - Abdominal distension [Recovering/Resolving]
  - Constipation [Recovering/Resolving]
  - Abdominal pain [Unknown]
  - Decreased appetite [Unknown]
  - Anxiety [Unknown]

NARRATIVE: CASE EVENT DATE: 20240419
